FAERS Safety Report 8552244-5 (Version None)
Quarter: 2012Q3

REPORT INFORMATION
  Report Type: 
  Country: None (occurrence: None)
  Receive Date: 20120731
  Receipt Date: 20120719
  Transmission Date: 20120928
  Serious: Yes (Other)
  Sender: FDA-Public Use
  Company Number: UA-GE HEALTHCARE MEDICAL DIAGNOSTICS-VISP-NO-1207S-0314

PATIENT
  Age: 52 Year
  Sex: Male

DRUGS (1)
  1. VISIPAQUE [Suspect]
     Route: 042
     Dates: start: 20120704, end: 20120704

REACTIONS (6)
  - COLD SWEAT [None]
  - BACK PAIN [None]
  - BLOOD PRESSURE DECREASED [None]
  - ASTHENIA [None]
  - CHILLS [None]
  - BODY TEMPERATURE INCREASED [None]
